FAERS Safety Report 9940989 (Version 1)
Quarter: 2014Q1

REPORT INFORMATION
  Report Type: Spontaneous
  Country: US (occurrence: US)
  Receive Date: 20140303
  Receipt Date: 20140303
  Transmission Date: 20141002
  Serious: Yes (Other)
  Sender: FDA-Public Use
  Company Number: US-BRISTOL-MYERS SQUIBB COMPANY-20297982

PATIENT
  Age: 93 Year
  Sex: Female
  Weight: 77.1 kg

DRUGS (7)
  1. COUMADIN [Suspect]
     Indication: CARDIAC FIBRILLATION
     Dosage: 1DF=2.2 UNITS NOS
  2. ATENOLOL [Concomitant]
  3. LOSARTAN [Concomitant]
  4. NORVASC [Concomitant]
  5. FUROSEMIDE [Concomitant]
  6. ALLOPURINOL [Concomitant]
  7. RITUXAN [Concomitant]

REACTIONS (1)
  - Chronic leukaemia [Unknown]
